FAERS Safety Report 22018045 (Version 2)
Quarter: 2023Q1

REPORT INFORMATION
  Report Type: Spontaneous
  Country: US (occurrence: US)
  Receive Date: 20230221
  Receipt Date: 20230227
  Transmission Date: 20230418
  Serious: Yes (Other)
  Sender: FDA-Public Use
  Company Number: US-PFIZER INC-PV202300032383

PATIENT
  Age: 84 Year
  Sex: Female

DRUGS (3)
  1. IBRANCE [Suspect]
     Active Substance: PALBOCICLIB
     Indication: Breast cancer
     Dosage: 1 DF, CYCLIC (1 FOR 21 DAYS STOP FOR 7 CONSECUTIVE DAYS)
     Route: 048
  2. IBRANCE [Suspect]
     Active Substance: PALBOCICLIB
     Dosage: 100 MG, CYCLIC (100 MG, FOR 21 DAYS STOP FOR 7 CONSECUTIVE DAYS)
     Route: 048
  3. IBRANCE [Suspect]
     Active Substance: PALBOCICLIB
     Dosage: 75 MG, CYCLIC (75 MG, FOR 21 DAYS STOP FOR 7 CONSECUTIVE DAYS)
     Route: 048

REACTIONS (4)
  - Neutropenia [Recovering/Resolving]
  - Cytopenia [Unknown]
  - White blood cell count decreased [Recovering/Resolving]
  - Tumour marker increased [Unknown]
